FAERS Safety Report 8394755 (Version 4)
Quarter: 2012Q4

REPORT INFORMATION
  Report Type: 
  Country: US (occurrence: US)
  Receive Date: 20120207
  Receipt Date: 20121115
  Transmission Date: 20130627
  Serious: Yes (Hospitalization, Other)
  Sender: FDA-Public Use
  Company Number: US-BAYER-2012-009284

PATIENT
  Age: 55 Year
  Sex: Female
  Weight: 72.56 kg

DRUGS (13)
  1. YAZ [Suspect]
     Indication: PREMENSTRUAL DYSPHORIC DISORDER
     Dosage: UNK
     Dates: start: 20050401, end: 20110503
  2. YAZ [Suspect]
     Indication: VAGINAL BLEEDING
  3. GIANVI [Suspect]
     Indication: PREMENSTRUAL DYSPHORIC DISORDER
     Dosage: UNK
     Dates: start: 201007, end: 201105
  4. GIANVI [Suspect]
     Indication: VAGINAL BLEEDING
  5. ADVIL [Concomitant]
     Dosage: UNK
     Dates: start: 200605, end: 2011
  6. MOTRIN [Concomitant]
     Dosage: UNK
     Dates: start: 200605, end: 2011
  7. CIPRO [Concomitant]
     Indication: TIA
     Dosage: 500 mg, UNK
     Dates: start: 201011
  8. HYDROCODONE [Concomitant]
     Indication: PAIN
     Dosage: UNK
     Dates: start: 201008
  9. UNCODEABLE ^UNCLASSIFIABLE^ [Concomitant]
     Indication: TIA
     Dosage: UNK
     Dates: start: 201011
  10. DEPO PROVERA [Concomitant]
  11. FISH OIL [Concomitant]
  12. LUPRON [Concomitant]
  13. LEXAPRO [Concomitant]
     Dosage: 10 mg
     Route: 048

REACTIONS (14)
  - Pulmonary embolism [Recovered/Resolved]
  - Deep vein thrombosis [Recovered/Resolved]
  - Vaginal haemorrhage [None]
  - Dyspnoea [Recovered/Resolved]
  - Hypoaesthesia [Recovered/Resolved]
  - Pain in extremity [Recovered/Resolved]
  - Emotional distress [None]
  - Pain [Recovered/Resolved]
  - General physical health deterioration [Recovered/Resolved]
  - General physical health deterioration [Recovered/Resolved]
  - Anxiety [None]
  - Headache [None]
  - Eyelid ptosis [None]
  - Off label use [None]
